FAERS Safety Report 22985238 (Version 2)
Quarter: 2023Q4

REPORT INFORMATION
  Report Type: Spontaneous
  Country: US (occurrence: None)
  Receive Date: 20230926
  Receipt Date: 20231020
  Transmission Date: 20240110
  Serious: Yes (Hospitalization, Other)
  Sender: FDA-Public Use
  Company Number: 2023A213426

PATIENT
  Age: 72 Year
  Sex: Female
  Weight: 44 kg

DRUGS (3)
  1. FASLODEX [Suspect]
     Active Substance: FULVESTRANT
     Indication: Breast cancer female
     Dosage: 500.0MG UNKNOWN
     Route: 030
     Dates: start: 20230522
  2. PALBOCICLIB [Suspect]
     Active Substance: PALBOCICLIB
     Indication: Breast cancer female
     Dosage: 125.0MG UNKNOWN
     Route: 048
     Dates: start: 20230522
  3. PALBOCICLIB [Suspect]
     Active Substance: PALBOCICLIB
     Indication: Breast cancer female
     Dosage: 100.0MG UNKNOWN
     Route: 048
     Dates: start: 20230626, end: 20230821

REACTIONS (5)
  - Femur fracture [Recovering/Resolving]
  - Fall [Unknown]
  - Weight bearing difficulty [Unknown]
  - Asthenia [Recovered/Resolved]
  - Fatigue [Not Recovered/Not Resolved]

NARRATIVE: CASE EVENT DATE: 20230707
